FAERS Safety Report 18004828 (Version 3)
Quarter: 2020Q3

REPORT INFORMATION
  Report Type: Spontaneous
  Country: BR (occurrence: BR)
  Receive Date: 20200710
  Receipt Date: 20200909
  Transmission Date: 20201103
  Serious: Yes (Life-Threatening, Other)
  Sender: FDA-Public Use
  Company Number: BR-BRISTOL-MYERS SQUIBB COMPANY-BMS-2020-054992

PATIENT
  Age: 39 Year
  Sex: Male

DRUGS (4)
  1. IPILIMUMAB [Suspect]
     Active Substance: IPILIMUMAB
     Dosage: 3 MILLIGRAM/KILOGRAM
     Route: 065
  2. IPILIMUMAB [Suspect]
     Active Substance: IPILIMUMAB
     Indication: METASTATIC MALIGNANT MELANOMA
     Dosage: 1 MILLIGRAM/KILOGRAM
     Route: 065
  3. NIVOLUMAB [Suspect]
     Active Substance: NIVOLUMAB
     Indication: METASTATIC MALIGNANT MELANOMA
     Dosage: 3 MILLIGRAM/KILOGRAM
     Route: 065
  4. NIVOLUMAB [Suspect]
     Active Substance: NIVOLUMAB
     Dosage: 1 MILLIGRAM/KILOGRAM
     Route: 065

REACTIONS (2)
  - Intestinal perforation [Unknown]
  - Off label use [Unknown]

NARRATIVE: CASE EVENT DATE: 20200710
